FAERS Safety Report 25570833 (Version 1)
Quarter: 2025Q3

REPORT INFORMATION
  Report Type: Spontaneous
  Country: US (occurrence: US)
  Receive Date: 20250717
  Receipt Date: 20250717
  Transmission Date: 20251020
  Serious: No
  Sender: BAUSCH AND LOMB
  Company Number: US-BAUSCHBL-2025BNL012483

PATIENT
  Sex: Female

DRUGS (1)
  1. LUMIFY PRESERVATIVE FREE EYE DROPS [Suspect]
     Active Substance: BRIMONIDINE TARTRATE
     Indication: Ocular hyperaemia
     Dosage: 1 GTT QD
     Route: 047
     Dates: start: 202505, end: 202507

REACTIONS (2)
  - Eye pruritus [Recovering/Resolving]
  - Drug ineffective [Unknown]

NARRATIVE: CASE EVENT DATE: 20250101
